FAERS Safety Report 19663583 (Version 2)
Quarter: 2021Q3

REPORT INFORMATION
  Report Type: Spontaneous
  Country: BR (occurrence: BR)
  Receive Date: 20210805
  Receipt Date: 20210811
  Transmission Date: 20211014
  Serious: Yes (Other)
  Sender: FDA-Public Use
  Company Number: BR-TAKEDA-2021TUS048783

PATIENT
  Sex: Female
  Weight: 58 kg

DRUGS (5)
  1. LITHIUM. [Concomitant]
     Active Substance: LITHIUM
  2. VENLAFAXINE [Concomitant]
     Active Substance: VENLAFAXINE HYDROCHLORIDE
  3. CONCERTA [Suspect]
     Active Substance: METHYLPHENIDATE HYDROCHLORIDE
     Indication: PRODUCT USED FOR UNKNOWN INDICATION
     Route: 065
  4. VENVANSE [Suspect]
     Active Substance: LISDEXAMFETAMINE DIMESYLATE
     Dosage: 1 DOSAGE FORM(CAPSULE), QD
     Route: 048
     Dates: start: 202010
  5. VENVANSE [Suspect]
     Active Substance: LISDEXAMFETAMINE DIMESYLATE
     Indication: DEPRESSION
     Dosage: UNKNOWN
     Route: 065

REACTIONS (10)
  - Drug ineffective [Unknown]
  - Hunger [Unknown]
  - Unevaluable event [Unknown]
  - Off label use [Unknown]
  - Suicidal ideation [Unknown]
  - Depression [Unknown]
  - Tachycardia [Unknown]
  - Counterfeit product administered [Unknown]
  - Somnolence [Unknown]
  - Irritability [Unknown]
